FAERS Safety Report 13667178 (Version 3)
Quarter: 2017Q3

REPORT INFORMATION
  Report Type: Spontaneous
  Country: US (occurrence: US)
  Receive Date: 20170619
  Receipt Date: 20170727
  Transmission Date: 20171127
  Serious: No
  Sender: FDA-Public Use
  Company Number: US-SHIRE-US201713572

PATIENT
  Age: 56 Year
  Sex: Female
  Weight: 56.24 kg

DRUGS (1)
  1. XIIDRA [Suspect]
     Active Substance: LIFITEGRAST
     Indication: DRY EYE
     Dosage: 1 GTT, 1X/DAY:QD (OU)
     Route: 047
     Dates: start: 2016

REACTIONS (6)
  - Inappropriate schedule of drug administration [Not Recovered/Not Resolved]
  - Drug ineffective [Unknown]
  - Product quality issue [Unknown]
  - Asthenopia [Unknown]
  - Instillation site irritation [Unknown]
  - Fatigue [Unknown]

NARRATIVE: CASE EVENT DATE: 201705
